FAERS Safety Report 18245225 (Version 1)
Quarter: 2020Q3

REPORT INFORMATION
  Report Type: Spontaneous
  Country: JP (occurrence: JP)
  Receive Date: 20200909
  Receipt Date: 20200909
  Transmission Date: 20201103
  Serious: Yes (Death, Hospitalization)
  Sender: FDA-Public Use
  Company Number: JP-CHEPLA-C20202571

PATIENT
  Age: 25 Year
  Sex: Female

DRUGS (6)
  1. PREDONINE [Concomitant]
     Active Substance: PREDNISOLONE
  2. DENOSINE FOR I.V.INFUSION 500MG [Suspect]
     Active Substance: GANCICLOVIR SODIUM
     Route: 041
  3. VALIXA TABLETS 450MG [Suspect]
     Active Substance: VALGANCICLOVIR HYDROCHLORIDE
     Route: 048
  4. VITAMIN C [Concomitant]
     Active Substance: ASCORBIC ACID
  5. PREVYMIS [Concomitant]
     Active Substance: LETERMOVIR
  6. AMPHOTERICIN B. [Concomitant]
     Active Substance: AMPHOTERICIN B

REACTIONS (7)
  - Red blood cell count decreased [Unknown]
  - Platelet count decreased [Unknown]
  - Lymphopenia [Unknown]
  - Pneumonia [Unknown]
  - Death [Fatal]
  - Mucormycosis [Unknown]
  - Dyspnoea [Unknown]
